FAERS Safety Report 4725589-4 (Version None)
Quarter: 2005Q3

REPORT INFORMATION
  Report Type: 
  Country: None (occurrence: None)
  Receive Date: 20050725
  Receipt Date: 20050715
  Transmission Date: 20060218
  Serious: Yes (Other)
  Sender: FDA-Public Use
  Company Number: 200511414BWH

PATIENT
  Age: 56 Year
  Sex: Male

DRUGS (13)
  1. AVELOX [Suspect]
     Indication: BRONCHITIS
     Dosage: 400 MG, QD; ORAL
     Route: 048
     Dates: start: 20050712, end: 20050715
  2. COUGH MEDICATION WITH CODEINE NOS [Concomitant]
  3. MANDELAMINE [Concomitant]
  4. UROQUID [Concomitant]
  5. DIOVAN [Concomitant]
  6. PLAVIX [Concomitant]
  7. AMARYL [Concomitant]
  8. TRICOR [Concomitant]
  9. GLUCOPHAGE [Concomitant]
  10. COREG [Concomitant]
  11. CRESTOR [Concomitant]
  12. MULTI-VITAMIN [Concomitant]
  13. VITAMINS NOS [Concomitant]

REACTIONS (5)
  - DEPRESSION [None]
  - FEELING ABNORMAL [None]
  - HALLUCINATION [None]
  - PRURITUS [None]
  - SUICIDAL IDEATION [None]
